FAERS Safety Report 24743887 (Version 1)
Quarter: 2024Q4

REPORT INFORMATION
  Report Type: Spontaneous
  Country: US (occurrence: US)
  Receive Date: 20241217
  Receipt Date: 20241217
  Transmission Date: 20250115
  Serious: Yes (Other)
  Sender: PFIZER
  Company Number: US-PFIZER INC-PV202300192658

PATIENT
  Age: 85 Year
  Sex: Female

DRUGS (2)
  1. IBRANCE [Suspect]
     Active Substance: PALBOCICLIB
     Indication: Breast cancer metastatic
     Dosage: 1 TAB DAILY X 21 DAYS THEN 7 DAYS OFF; ADMINISTER ON DAYS 1 THROUGH 21 OF A 28-DAY TREATMENT CYCLE
     Route: 048
     Dates: start: 201706
  2. LETROZOLE [Concomitant]
     Active Substance: LETROZOLE
     Dosage: UNK
     Dates: start: 201706

REACTIONS (4)
  - Neutropenia [Recovering/Resolving]
  - Neoplasm progression [Unknown]
  - Lymphoedema [Unknown]
  - Thyroid mass [Unknown]

NARRATIVE: CASE EVENT DATE: 20240919
